FAERS Safety Report 9070429 (Version 1)
Quarter: 2013Q1

REPORT INFORMATION
  Report Type: Report from Study
  Country: US (occurrence: US)
  Receive Date: 20130129
  Receipt Date: 20130129
  Transmission Date: 20140127
  Serious: No
  Sender: FDA-Public Use
  Company Number: US-ABBOTT-12P-163-0927110-00

PATIENT
  Age: 44 Year
  Sex: Female

DRUGS (6)
  1. HUMIRA 40 MG/0.8 ML PEN [Suspect]
     Indication: CROHN^S DISEASE
     Route: 058
     Dates: start: 201202
  2. CLONAZEPAM [Concomitant]
     Indication: MUSCLE SPASMS
  3. CLONAZEPAM [Concomitant]
     Indication: BLOOD POTASSIUM DECREASED
  4. REQUIP [Concomitant]
     Indication: MUSCLE SPASMS
  5. VICODIN [Concomitant]
     Indication: PAIN
     Dosage: ONCE A DAY AS NEEDED
  6. POTASSIUM [Concomitant]
     Indication: BLOOD POTASSIUM DECREASED

REACTIONS (1)
  - Pyrexia [Not Recovered/Not Resolved]
